FAERS Safety Report 19229028 (Version 2)
Quarter: 2021Q3

REPORT INFORMATION
  Report Type: Spontaneous
  Country: US (occurrence: US)
  Receive Date: 20210506
  Receipt Date: 20210802
  Transmission Date: 20211014
  Serious: Yes (Other)
  Sender: FDA-Public Use
  Company Number: US-TEVA-2021-US-1907232

PATIENT
  Age: 67 Year
  Sex: Male

DRUGS (8)
  1. BUPRENORPHINE/NALOXONE [Suspect]
     Active Substance: BUPRENORPHINE\NALOXONE
     Dosage: 12 MILLIGRAM DAILY; DAY 6; THREE TIMES A DAY
     Route: 060
  2. BUPRENORPHINE/NALOXONE [Suspect]
     Active Substance: BUPRENORPHINE\NALOXONE
     Indication: DRUG THERAPY
     Dosage: 1 MILLIGRAM DAILY; DAY 2
     Route: 060
  3. BUPRENORPHINE/NALOXONE [Suspect]
     Active Substance: BUPRENORPHINE\NALOXONE
     Dosage: 2 MILLIGRAM DAILY; DAY 3
     Route: 060
  4. BUPRENORPHINE/NALOXONE [Suspect]
     Active Substance: BUPRENORPHINE\NALOXONE
     Dosage: 6 MILLIGRAM DAILY; DAY 5; THREE TIMES A DAY
     Route: 060
  5. BUPRENORPHINE/NALOXONE [Suspect]
     Active Substance: BUPRENORPHINE\NALOXONE
     Indication: PAIN
     Dosage: .5 MILLIGRAM DAILY; DAY 1
     Route: 060
  6. BUPRENORPHINE/NALOXONE [Suspect]
     Active Substance: BUPRENORPHINE\NALOXONE
     Dosage: 4 MILLIGRAM DAILY; DAY 4
     Route: 060
  7. HYDROCODONE/ACETAMINOPHEN [Suspect]
     Active Substance: ACETAMINOPHEN\HYDROCODONE
     Indication: PAIN
     Dosage: AT THE TIME OF INDUCTION; 10?325 MG 8 PER DAY; MORPHINE EQUIVALENT DAILY DOSE 80MG
     Route: 065
  8. BUPRENORPHINE. [Suspect]
     Active Substance: BUPRENORPHINE
     Indication: DRUG THERAPY
     Dosage: UNABLE TO TOLERATE BUPRENORPHINE 2 MG
     Route: 060

REACTIONS (3)
  - Sedation complication [Not Recovered/Not Resolved]
  - Drug dependence [Recovering/Resolving]
  - Off label use [Unknown]
